FAERS Safety Report 17122445 (Version 1)
Quarter: 2019Q4

REPORT INFORMATION
  Report Type: Spontaneous
  Country: CA (occurrence: CA)
  Receive Date: 20191206
  Receipt Date: 20191206
  Transmission Date: 20200122
  Serious: Yes (Other)
  Sender: FDA-Public Use
  Company Number: CA-PFIZER INC-2019524315

PATIENT
  Sex: Female

DRUGS (7)
  1. MARIJUANA [Suspect]
     Active Substance: CANNABIS SATIVA SUBSP. INDICA TOP
     Dosage: UNK
     Route: 065
  2. METAMFETAMINE HYDROCHLORIDE [Suspect]
     Active Substance: METHAMPHETAMINE HYDROCHLORIDE
     Dosage: UNK
     Route: 065
  3. FENTANYL CITRATE. [Suspect]
     Active Substance: FENTANYL CITRATE
     Dosage: UNK
     Route: 042
  4. LYSERGIDE [Suspect]
     Active Substance: LYSERGIDE
     Dosage: UNK
     Route: 042
  5. OXYCODONE HYDROCHLORIDE. [Suspect]
     Active Substance: OXYCODONE HYDROCHLORIDE
     Dosage: UNK
     Route: 045
  6. OXYCODONE HYDROCHLORIDE. [Suspect]
     Active Substance: OXYCODONE HYDROCHLORIDE
     Dosage: UNK
     Route: 042
  7. COCAINE [Suspect]
     Active Substance: COCAINE
     Dosage: UNK
     Route: 065

REACTIONS (8)
  - Malaise [Recovered/Resolved]
  - Substance abuse [Recovered/Resolved]
  - Loss of consciousness [Recovered/Resolved]
  - Substance dependence [Recovered/Resolved]
  - Overdose [Unknown]
  - Drug withdrawal syndrome [Recovered/Resolved]
  - Euphoric mood [Recovered/Resolved]
  - Drug tolerance [Recovered/Resolved]
